FAERS Safety Report 7082971-0 (Version None)
Quarter: 2010Q4

REPORT INFORMATION
  Report Type: 
  Country: None (occurrence: None)
  Receive Date: 20101026
  Receipt Date: 20101011
  Transmission Date: 20110411
  Serious: Yes (Hospitalization)
  Sender: FDA-Public Use
  Company Number: DSJ-2010-18484

PATIENT
  Age: 84 Year
  Sex: Male
  Weight: 58 kg

DRUGS (24)
  1. SEVIKAR (OLMESARTAN MEDOXOMIL, AMLODIPINE BESILATE) (TABLET) (OLMESART [Suspect]
     Indication: HYPERTENSION
     Dosage: 5/20MG, PER ORAL
     Route: 048
     Dates: start: 20100705
  2. ASTRIX (ACETYLSALICYLIC ACID) (ACETYLSALICYLIC ACID) [Concomitant]
  3. CONCOR (BISOPROLOL FUMARATE) (BISOPROLOL FUMARATE) [Concomitant]
  4. LIPILON [INGREDIENT UNKNOWN] [Concomitant]
  5. TORSEM (TORASEMIDE) (TORASEMIDE) [Concomitant]
  6. GLIMEL (GLIBENCLAMIDE) (GLIBENCLAMIDE) [Concomitant]
  7. KALIMATE (SODIUM POLYSTYRENE SULFONATE) (SODIUM POLYSTYRENE SULFONATE) [Concomitant]
  8. ASPIRIN PROTECT (ACETYLSALICYLIC ACID) (ACETYLSALICYLIC ACID) [Concomitant]
  9. MUCOTRA (REBAMIPIDE) (REBAMIPIDE) [Concomitant]
  10. RESPILENE SYRUP (PHOLCODINE) (PHOLCODINE) [Concomitant]
  11. MUCOPECT (AMBROXOL HYDROCHLORIDE) (AMBROXOL HYDROCHLORIDE) [Concomitant]
  12. TYLENOL-ER (PARACETAMOL) (PARACETAMOL) [Concomitant]
  13. SUPRAX (CEFOTAXIME SODIUM) (CEFOTAXIME SODIUM) [Concomitant]
  14. COFREL (BENPROPERINE EMBONATE) (BENPROPERINE EMBONATE) [Concomitant]
  15. ALPRAZOLAM [Concomitant]
  16. AMODIPIN (AMLODIPINE) (AMLODIPINE) [Concomitant]
  17. AMOSARTAN [INGREDIENT UNKNOWN] [Concomitant]
  18. APIDRA (INSULIN GLULISINE) (INSULIN GLULISINE) [Concomitant]
  19. DILATREND (CARVEDILOL) (CARVEDILOL) [Concomitant]
  20. HARNAL-D (TAMSULOSIN HYDROCHLORIDE) (TAMSULOSIN HYDROCHLORIDE) [Concomitant]
  21. ISOKET INJECTION (ISOSORBIDE DINITRATE) (INJECTION) (ISOSORBIDE DINITR [Concomitant]
  22. KCL (POTASSIUM CHLORIDE) (POTASSIUM CHLORIDE) [Concomitant]
  23. K-CONTIN (POTASSIUM CHLORIDE) (POTASSIUM CHLORIDE) [Concomitant]
  24. PONTAL (MEFENAMIC ACID) (MEFENAMIC ACID) [Concomitant]

REACTIONS (3)
  - CHEST PAIN [None]
  - CONDITION AGGRAVATED [None]
  - CORONARY ARTERY OCCLUSION [None]
